FAERS Safety Report 9698255 (Version 2)
Quarter: 2013Q4

REPORT INFORMATION
  Report Type: Spontaneous
  Country: US (occurrence: None)
  Receive Date: 20131104
  Receipt Date: 20131108
  Transmission Date: 20140711
  Serious: Yes (Other)
  Sender: FDA-Public Use
  Company Number: 2011029522

PATIENT
  Sex: Female
  Weight: 92.08 kg

DRUGS (39)
  1. HIZENTRA [Suspect]
     Indication: IMMUNODEFICIENCY COMMON VARIABLE
     Dosage: 20 G 1X/WEEK, 4 GM 20 ML; 100 ML IN MULTIPLE SITES WEEKLY SUBCUTANEOUS
     Route: 058
     Dates: start: 20100525
  2. AVELOX (MOXIFLOXACIN HYDROCHLORIDE) [Concomitant]
  3. TRAMADOL [Concomitant]
  4. CLINDAMYCIN [Concomitant]
  5. HCTZ (HYDROCHLOROTHIAZIDE) [Concomitant]
  6. CEFTIN (CEFUROXIME AXETIL) [Concomitant]
  7. PRILOSEC [Concomitant]
  8. LEVAQUIN (LEVOFLOXACIN) [Concomitant]
  9. LUTEIN (XANTOFYL) [Concomitant]
  10. VITAMIN D3 (COLECALCIFEROL) [Concomitant]
  11. OPTIVAR (AZELASTINE HYDROCHLORIDE) [Concomitant]
  12. HYCOTUSS (CODICLEAR) [Concomitant]
  13. QVAR (BECLOMETASONE DIPROPIONATE) [Concomitant]
  14. CROMOLYN (CROMOGLICIC ACID) [Concomitant]
  15. WELLBUTRIN (BUPROPION) [Concomitant]
  16. FLONASE (FLUTICASONE PROPIONATE) [Concomitant]
  17. VERAMYST (BUDESONIDE W/FORMOTEROL FUMARATE) [Concomitant]
  18. IPRATROPIUM [Concomitant]
  19. COMBIVENT (BREVA) [Concomitant]
  20. ASPIRIN (ACETYLSALICYLIC ACID) [Concomitant]
  21. ALBUTEROL (SALBUTAMOL) [Concomitant]
  22. SYNTHROID (LEVOTHYROXINE SODIUM) [Concomitant]
  23. VALTREX (VALACICLOVIR HYDROCHLORIDE) [Concomitant]
  24. ZANTAC (RANITIDINE HYDROCHLORIDE) [Concomitant]
  25. IBUPROFEN [Concomitant]
  26. MAGNESIUM [Concomitant]
  27. MULTIVITAMINS/MINERALS [Concomitant]
  28. COUMADIN (WARFARIN SODIUM) [Concomitant]
  29. METOPROLOL [Concomitant]
  30. XARELTO (ALL OTHER THERAPEUTIC PRODUCTS) [Concomitant]
  31. OXYGEN [Concomitant]
  32. CHERATUSSIN [Concomitant]
  33. DIPHENHYDRAMINE [Concomitant]
  34. LIDOCAINE/PRILOCAINE (EMLA /00675501/) [Concomitant]
  35. EPI PEN (EPINEPHRINE) [Concomitant]
  36. LMX (LIDOCAINE) [Concomitant]
  37. HYDROCHLOROTHIAZIDE [Concomitant]
  38. GUAIFENESIN [Concomitant]
  39. SYMBICORT [Concomitant]

REACTIONS (6)
  - Haemorrhage [None]
  - Anaemia [None]
  - Headache [None]
  - Back pain [None]
  - Fatigue [None]
  - Chills [None]
